FAERS Safety Report 5658447-1 (Version None)
Quarter: 2008Q1

REPORT INFORMATION
  Report Type: 
  Country: None (occurrence: None)
  Receive Date: 20080310
  Receipt Date: 20070315
  Transmission Date: 20080703
  Serious: No
  Sender: FDA-Public Use
  Company Number: US-BAYER-200710541BCC

PATIENT
  Age: 90 Year
  Sex: Female
  Weight: 59 kg

DRUGS (3)
  1. ALEVE [Suspect]
     Indication: PAIN
     Dosage: TOTAL DAILY DOSE: 440 MG  UNIT DOSE: 220 MG
     Route: 048
     Dates: start: 20070219
  2. FOSAMAX [Concomitant]
  3. WATER PILL [Concomitant]

REACTIONS (3)
  - FEELING HOT [None]
  - PARAESTHESIA [None]
  - TINNITUS [None]
